FAERS Safety Report 9172118 (Version 1)
Quarter: 2013Q1

REPORT INFORMATION
  Report Type: Spontaneous
  Country: ES (occurrence: ES)
  Receive Date: 20130319
  Receipt Date: 20130319
  Transmission Date: 20140127
  Serious: Yes (Hospitalization)
  Sender: FDA-Public Use
  Company Number: ES-TEVA-391626ISR

PATIENT
  Age: 56 Year
  Sex: Male

DRUGS (1)
  1. OFLOXACIN [Suspect]
     Route: 065

REACTIONS (1)
  - Linear IgA disease [Recovered/Resolved]
